FAERS Safety Report 4505868-6 (Version None)
Quarter: 2004Q4

REPORT INFORMATION
  Report Type: 
  Country: None (occurrence: None)
  Receive Date: 20041025
  Receipt Date: 20040706
  Transmission Date: 20050328
  Serious: Yes (Hospitalization, Other)
  Sender: FDA-Public Use
  Company Number: US-JNJFOC-20040302498

PATIENT
  Age: 44 Year
  Sex: Male
  Weight: 74.3899 kg

DRUGS (3)
  1. REMICADE [Suspect]
     Indication: RHEUMATOID ARTHRITIS
     Dosage: 400 MG, 1 IN 6 WEEK, INTRAVENOUS
     Route: 042
     Dates: start: 20031014
  2. REMICADE [Suspect]
     Indication: RHEUMATOID ARTHRITIS
     Dosage: 400 MG, 1 IN 6 WEEK, INTRAVENOUS
     Route: 042
     Dates: start: 20040115
  3. HYDROCODONE BITARTRATE [Concomitant]

REACTIONS (2)
  - BRONCHITIS [None]
  - TUBERCULOSIS [None]
